FAERS Safety Report 7994016-6 (Version None)
Quarter: 2011Q4

REPORT INFORMATION
  Report Type: 
  Country: None (occurrence: None)
  Receive Date: 20111220
  Receipt Date: 20111208
  Transmission Date: 20120403
  Serious: Yes (Other)
  Sender: FDA-Public Use
  Company Number: US-BAYER-2011-084248

PATIENT
  Age: 20 Year
  Sex: Female

DRUGS (2)
  1. MIRENA [Suspect]
     Indication: MENORRHAGIA
     Dosage: 20 MCG/24HR, CONT
     Route: 015
     Dates: start: 20110511
  2. MIRENA [Suspect]
     Indication: CONTRACEPTION

REACTIONS (8)
  - VAGINAL DISCHARGE [None]
  - ABDOMINAL PAIN [None]
  - DEVICE DISLOCATION [None]
  - NAUSEA [None]
  - VULVOVAGINAL PAIN [None]
  - POLYMENORRHOEA [None]
  - PELVIC PAIN [None]
  - DIZZINESS [None]
